FAERS Safety Report 8786731 (Version 2)
Quarter: 2012Q4

REPORT INFORMATION
  Report Type: Report from Study
  Country: CA (occurrence: CA)
  Receive Date: 20120914
  Receipt Date: 20121005
  Transmission Date: 20130627
  Serious: Yes (Hospitalization, Other)
  Sender: FDA-Public Use
  Company Number: CA-ABBOTT-12P-028-0977566-00

PATIENT
  Sex: Female
  Weight: 77.18 kg

DRUGS (2)
  1. HUMIRA [Suspect]
     Indication: CROHN^S DISEASE
     Route: 058
     Dates: start: 20111014
  2. OSTEO ESTROGEN PATCH [Concomitant]

REACTIONS (6)
  - Cerebral artery embolism [Not Recovered/Not Resolved]
  - Thrombosis [Not Recovered/Not Resolved]
  - Dyspnoea [Unknown]
  - Pneumonia [Unknown]
  - Pulmonary embolism [Unknown]
  - Peripheral embolism [Unknown]
